FAERS Safety Report 7014999-0 (Version None)
Quarter: 2010Q3

REPORT INFORMATION
  Report Type: 
  Country: None (occurrence: None)
  Receive Date: 20100927
  Receipt Date: 20100612
  Transmission Date: 20110219
  Serious: No
  Sender: FDA-Public Use
  Company Number: US-ASTRAZENECA-2010SE25651

PATIENT
  Age: 77 Year
  Sex: Female
  Weight: 61.7 kg

DRUGS (1)
  1. ARIMIDEX [Suspect]
     Indication: BREAST CANCER
     Route: 048
     Dates: start: 20070413

REACTIONS (2)
  - BODY HEIGHT DECREASED [None]
  - FOOT FRACTURE [None]
